FAERS Safety Report 23789943 (Version 2)
Quarter: 2024Q2

REPORT INFORMATION
  Report Type: Spontaneous
  Country: AR (occurrence: None)
  Receive Date: 20240426
  Receipt Date: 20240507
  Transmission Date: 20240716
  Serious: Yes (Life-Threatening)
  Sender: FDA-Public Use
  Company Number: 2024A099311

PATIENT
  Age: 12783 Day
  Sex: Female

DRUGS (1)
  1. BUDESONIDE\FORMOTEROL [Suspect]
     Active Substance: BUDESONIDE\FORMOTEROL
     Indication: Asthma
     Dosage: 1-2PUFF/12HS + SOS, 160/4.5UG/D, UNKNOWN UNKNOWN
     Route: 055
     Dates: start: 2020, end: 20240418

REACTIONS (3)
  - Asthmatic crisis [Unknown]
  - Back pain [Not Recovered/Not Resolved]
  - Device malfunction [Unknown]

NARRATIVE: CASE EVENT DATE: 20240418
